FAERS Safety Report 4523083-7 (Version None)
Quarter: 2004Q4

REPORT INFORMATION
  Report Type: 
  Country: None (occurrence: None)
  Receive Date: 20041207
  Receipt Date: 20041207
  Transmission Date: 20050328
  Serious: Yes (Other)
  Sender: FDA-Public Use
  Company Number: None

PATIENT
  Age: 85 Year
  Sex: Female
  Weight: 56.6996 kg

DRUGS (1)
  1. NAMENDA [Suspect]
     Indication: DEMENTIA
     Dosage: 5MG/ 10-20 5MG/ 10-21 5MG/ 10-21 5MG/ 10-23 5MG/ 10-23 5MG/ 10-24
     Dates: start: 20041020, end: 20041024

REACTIONS (3)
  - ABNORMAL BEHAVIOUR [None]
  - AGGRESSION [None]
  - DELUSION [None]
